FAERS Safety Report 14182611 (Version 1)
Quarter: 2017Q4

REPORT INFORMATION
  Report Type: Spontaneous
  Country: CH (occurrence: CH)
  Receive Date: 20171113
  Receipt Date: 20171113
  Transmission Date: 20180321
  Serious: Yes (Hospitalization, Other)
  Sender: FDA-Public Use
  Company Number: CH-ROCHE-2020972

PATIENT
  Age: 9 Year
  Sex: Female

DRUGS (20)
  1. PARACETAMOL [Concomitant]
     Active Substance: ACETAMINOPHEN
  2. FUROSEMIDE. [Concomitant]
     Active Substance: FUROSEMIDE
  3. ACYCLOVIR. [Concomitant]
     Active Substance: ACYCLOVIR
  4. METAMIZOLE [Concomitant]
     Active Substance: METAMIZOLE
  5. CEFTRIAXONE. [Concomitant]
     Active Substance: CEFTRIAXONE
     Route: 065
  6. METAMIZOLE [Concomitant]
     Active Substance: METAMIZOLE
  7. PARACETAMOL [Concomitant]
     Active Substance: ACETAMINOPHEN
  8. FLUDARABINE [Concomitant]
     Active Substance: FLUDARABINE PHOSPHATE
     Route: 065
     Dates: start: 20160921, end: 20160924
  9. LINEZOLID. [Concomitant]
     Active Substance: LINEZOLID
  10. FILGRASTIM [Concomitant]
     Active Substance: FILGRASTIM
     Route: 065
  11. TISAGENLECLEUCEL. [Suspect]
     Active Substance: TISAGENLECLEUCEL
     Indication: PRODUCT USED FOR UNKNOWN INDICATION
     Dosage: DOSAGE IS UNCERTAIN.
     Route: 041
  12. CYCLOPHOSPHAMIDE. [Concomitant]
     Active Substance: CYCLOPHOSPHAMIDE
     Route: 065
     Dates: start: 20160921, end: 20160922
  13. AMIKACIN [Concomitant]
     Active Substance: AMIKACIN
  14. NOREPINEPHRINE. [Concomitant]
     Active Substance: NOREPINEPHRINE
  15. AMPHOTERICIN B. [Concomitant]
     Active Substance: AMPHOTERICIN B
  16. LAVANID [Concomitant]
  17. ACTEMRA [Suspect]
     Active Substance: TOCILIZUMAB
     Indication: CYTOKINE RELEASE SYNDROME
     Dosage: DOSAGE IS UNCERTAIN.
     Route: 042
  18. BACTRIM [Concomitant]
     Active Substance: SULFAMETHOXAZOLE\TRIMETHOPRIM
     Route: 065
  19. LEVOMEPROMAZINE MALEATE [Concomitant]
     Active Substance: LEVOMEPROMAZINE MALEATE
  20. TEICOPLANIN [Concomitant]
     Active Substance: TEICOPLANIN

REACTIONS (4)
  - Bronchopulmonary aspergillosis [Not Recovered/Not Resolved]
  - Coagulopathy [Recovered/Resolved]
  - Gastroenteritis [Recovered/Resolved]
  - Febrile neutropenia [Recovered/Resolved]

NARRATIVE: CASE EVENT DATE: 20161012
